FAERS Safety Report 5389505-7 (Version None)
Quarter: 2007Q3

REPORT INFORMATION
  Report Type: 
  Country: None (occurrence: None)
  Receive Date: 20070717
  Receipt Date: 20070705
  Transmission Date: 20080115
  Serious: Yes (Other)
  Sender: FDA-Public Use
  Company Number: CA-PFIZER INC-2007056301

PATIENT
  Age: 50 Year
  Sex: Male

DRUGS (13)
  1. LYRICA [Suspect]
     Indication: DIABETIC NEUROPATHY
     Route: 048
     Dates: start: 20060101, end: 20070629
  2. CODEINE CONTIN [Concomitant]
  3. SPIRONOLACTONE [Concomitant]
  4. LIPITOR [Concomitant]
  5. PARIET [Concomitant]
  6. HYDROCHLOROTHIAZIDE [Concomitant]
  7. INSULIN ASPART [Concomitant]
     Dosage: TEXT:SLIDING SCALE, 60 NPH
  8. ALL OTHER THERAPEUTIC PRODUCTS [Concomitant]
     Dosage: DAILY DOSE:60MG
  9. METFORMIN HCL [Concomitant]
  10. RAMIPRIL [Concomitant]
     Dosage: DAILY DOSE:10MG
  11. ALL OTHER THERAPEUTIC PRODUCTS [Concomitant]
  12. GABAPENTIN [Concomitant]
     Indication: DIABETIC NEUROPATHY
     Dosage: DAILY DOSE:2400MG
  13. FUROSEMIDE [Concomitant]

REACTIONS (3)
  - INSOMNIA [None]
  - NAUSEA [None]
  - RESTLESSNESS [None]
